FAERS Safety Report 7310520-8 (Version None)
Quarter: 2011Q1

REPORT INFORMATION
  Report Type: 
  Country: None (occurrence: None)
  Receive Date: 20110224
  Receipt Date: 20101122
  Transmission Date: 20110831
  Serious: No
  Sender: FDA-Public Use
  Company Number: US-BRISTOL-MYERS SQUIBB COMPANY-15400005

PATIENT
  Age: 68 Year
  Sex: Female
  Weight: 98 kg

DRUGS (12)
  1. GLUCOPHAGE [Suspect]
     Indication: BLOOD GLUCOSE INCREASED
     Route: 065
     Dates: end: 20100901
  2. ESOMEPRAZOLE MAGNESIUM [Concomitant]
     Indication: DYSPEPSIA
  3. JANUVIA [Concomitant]
     Indication: BLOOD GLUCOSE INCREASED
  4. CELECOXIB [Concomitant]
     Indication: PAIN
  5. ORETIC [Concomitant]
     Indication: FLUID RETENTION
  6. CRANBERRY [Concomitant]
     Indication: NUTRITIONAL SUPPORT
     Dosage: PILLS
  7. CALCIUM [Concomitant]
     Indication: MINERAL SUPPLEMENTATION
  8. TELMISARTAN [Concomitant]
     Indication: HYPERTENSION
  9. FISH OIL [Concomitant]
     Indication: NUTRITIONAL SUPPORT
  10. GLUCOSE [Concomitant]
  11. MERIDIA [Suspect]
     Indication: WEIGHT DECREASED
     Dates: start: 20100801, end: 20100901
  12. ALENDRONATE SODIUM [Concomitant]
     Indication: OSTEOPOROSIS

REACTIONS (5)
  - FEELING ABNORMAL [None]
  - NAUSEA [None]
  - COLONIC POLYP [None]
  - DIARRHOEA [None]
  - ASTHENIA [None]
